FAERS Safety Report 18228338 (Version 1)
Quarter: 2020Q3

REPORT INFORMATION
  Report Type: Spontaneous
  Country: US (occurrence: US)
  Receive Date: 20200903
  Receipt Date: 20200903
  Transmission Date: 20201103
  Serious: Yes (Other)
  Sender: FDA-Public Use
  Company Number: None

PATIENT
  Age: 56 Year
  Sex: Female
  Weight: 54 kg

DRUGS (6)
  1. NATURES WAY ALIVE MAX?3 DAILY MULTI?BVITAMIN [Concomitant]
  2. CARLSON VITAMIN D3 [Concomitant]
  3. CLINDAMYCIN 150 MG CAPSULES NDC#00713317101 [Suspect]
     Active Substance: CLINDAMYCIN HYDROCHLORIDE
     Indication: IMPLANT SITE INFECTION
     Dosage: ?          QUANTITY:1 CAPSULE(S);?
     Route: 048
     Dates: start: 20200820, end: 20200827
  4. SOURCE NATUREL ULTIMATE ASCORBATE C [Concomitant]
  5. CLINDAMYCIN 150 MG CAPSULES NDC#00713317101 [Suspect]
     Active Substance: CLINDAMYCIN HYDROCHLORIDE
     Indication: GINGIVITIS
     Dosage: ?          QUANTITY:1 CAPSULE(S);?
     Route: 048
     Dates: start: 20200820, end: 20200827
  6. NATURE^S LIFE BLACK CURRANT OIL [Concomitant]

REACTIONS (2)
  - Tinnitus [None]
  - Therapy interrupted [None]

NARRATIVE: CASE EVENT DATE: 20200825
